FAERS Safety Report 8075353-6 (Version None)
Quarter: 2012Q1

REPORT INFORMATION
  Report Type: 
  Country: None (occurrence: None)
  Receive Date: 20120127
  Receipt Date: 20120119
  Transmission Date: 20120608
  Serious: Yes (Other)
  Sender: FDA-Public Use
  Company Number: US-BAYER-2012-007967

PATIENT
  Age: 26 Year
  Sex: Female
  Weight: 113.24 kg

DRUGS (4)
  1. YAZ [Suspect]
  2. YASMIN [Suspect]
     Indication: CONTRACEPTION
  3. CELEBREX [Concomitant]
     Dosage: 200 MG, QD
  4. FLEXERIL [Concomitant]
     Dosage: UNK UNK, PRN

REACTIONS (1)
  - DEEP VEIN THROMBOSIS [None]
